FAERS Safety Report 8834578 (Version 1)
Quarter: 2012Q4

REPORT INFORMATION
  Report Type: 
  Country: BR (occurrence: BR)
  Receive Date: 20121010
  Receipt Date: 20121010
  Transmission Date: 20130627
  Serious: Yes (Other)
  Sender: FDA-Public Use
  Company Number: BR-PFIZER INC-2012248993

PATIENT
  Age: 60 Year
  Sex: Female

DRUGS (6)
  1. LYRICA [Suspect]
     Indication: PAIN
     Dosage: Sometimes, 2 capsules of 75mg (150 mg), 1x/day
     Route: 048
     Dates: start: 2010
  2. CELEBRA [Suspect]
     Indication: SPINAL PAIN
     Dosage: 3 tablets (unspecified dosage and frequency)
     Route: 048
     Dates: start: 2004
  3. ABLOCK PLUS [Concomitant]
     Indication: BLOOD PRESSURE
     Dosage: one capsule or tablet of 50mg (not specified by reporter) daily
     Dates: start: 20000101
  4. SERTRALINE [Concomitant]
     Indication: DEPRESSION
     Dosage: 2 capsule or tablet (not specified by reporter) of 25mg (50mg) daily
  5. OMEPRAZOL [Concomitant]
     Indication: GASTRIC DISORDER
     Dosage: 2 capsule or tablet (not specified by reporter) of 20mg daily
     Dates: start: 2000
  6. PARIET [Concomitant]
     Indication: ULCER
     Dosage: 2 capsules or tablets (not specified by reporter) daily
     Dates: start: 2010

REACTIONS (14)
  - Tendonitis [Unknown]
  - Bursitis [Unknown]
  - Meniscus injury [Unknown]
  - Osteoarthritis [Unknown]
  - Spinal column injury [Unknown]
  - Hiatus hernia [Unknown]
  - Gastrointestinal ulcer [Recovered/Resolved]
  - Pain [Not Recovered/Not Resolved]
  - Chest discomfort [Unknown]
  - Headache [Unknown]
  - Blood pressure abnormal [Unknown]
  - Cyst [Unknown]
  - Feeling abnormal [Unknown]
  - Blood cholesterol increased [Unknown]
